FAERS Safety Report 4622332-4 (Version None)
Quarter: 2005Q1

REPORT INFORMATION
  Report Type: 
  Country: None (occurrence: None)
  Receive Date: 20050330
  Receipt Date: 20050321
  Transmission Date: 20050727
  Serious: Yes (Other)
  Sender: FDA-Public Use
  Company Number: PHEH2005US03368

PATIENT
  Age: 73 Year
  Sex: Female

DRUGS (7)
  1. ZELNORM [Suspect]
     Indication: CONSTIPATION
     Dosage: 6 MG, BID
     Dates: start: 20050307
  2. INSULIN [Concomitant]
     Indication: DIABETES MELLITUS
  3. LANOXIN [Concomitant]
     Indication: ATRIAL TACHYCARDIA
     Dates: start: 19850101
  4. VERAPAMIL [Concomitant]
  5. VISTARIL [Concomitant]
  6. TRAZODONE HCL [Concomitant]
     Indication: SLEEP DISORDER
     Dosage: UNK, UNK
     Dates: start: 20050201
  7. SIMVASTATIN [Concomitant]

REACTIONS (1)
  - BLOOD GLUCOSE INCREASED [None]
